FAERS Safety Report 7327162-0 (Version None)
Quarter: 2011Q1

REPORT INFORMATION
  Report Type: 
  Country: None (occurrence: None)
  Receive Date: 20110302
  Receipt Date: 20110224
  Transmission Date: 20110831
  Serious: Yes (Other)
  Sender: FDA-Public Use
  Company Number: US-AMGEN-QUU433673

PATIENT
  Age: 66 Year
  Sex: Male
  Weight: 90.249 kg

DRUGS (6)
  1. OXYGEN [Concomitant]
  2. NPLATE [Suspect]
     Dates: start: 20091123, end: 20100308
  3. BACTRIM [Concomitant]
  4. RITUXIMAB [Concomitant]
  5. NPLATE [Suspect]
     Indication: IDIOPATHIC THROMBOCYTOPENIC PURPURA
     Dosage: 250 A?G, UNK
     Dates: start: 20091203, end: 20100308
  6. CORTICOSTEROID NOS [Concomitant]
     Dosage: UNK UNK, UNK
     Dates: start: 20090925

REACTIONS (1)
  - THERAPEUTIC RESPONSE DECREASED [None]
